FAERS Safety Report 4737018-5 (Version None)
Quarter: 2005Q3

REPORT INFORMATION
  Report Type: 
  Country: None (occurrence: None)
  Receive Date: 20050802
  Receipt Date: 20050721
  Transmission Date: 20060218
  Serious: Yes (Hospitalization)
  Sender: FDA-Public Use
  Company Number: 2005105318

PATIENT
  Age: 72 Year
  Sex: Female
  Weight: 72.5755 kg

DRUGS (5)
  1. FLAGYL [Suspect]
     Indication: LIVER DISORDER
     Dates: start: 20021015
  2. AMITRIPTYLINE HCL [Concomitant]
  3. HYDROCHLOROTHIAZIDE [Concomitant]
  4. ESTROPIPATE [Concomitant]
  5. DIAZEPAM [Concomitant]

REACTIONS (6)
  - ADVERSE EVENT [None]
  - CONFUSIONAL STATE [None]
  - FALL [None]
  - HYPOAESTHESIA [None]
  - MEMORY IMPAIRMENT [None]
  - SPINAL FRACTURE [None]
